FAERS Safety Report 4648688-4 (Version None)
Quarter: 2005Q2

REPORT INFORMATION
  Report Type: 
  Country: None (occurrence: None)
  Receive Date: 20050429
  Receipt Date: 20050418
  Transmission Date: 20051028
  Serious: Yes (Other)
  Sender: FDA-Public Use
  Company Number: PHBS2005BR05482

PATIENT
  Age: 37 Year
  Sex: Female

DRUGS (3)
  1. TEGRETOL [Suspect]
     Indication: EPILEPSY
     Dosage: 4 TABLETS/DAY
     Route: 048
  2. GARDENAL [Concomitant]
     Indication: EPILEPSY
     Dosage: 100 MG/DAY
     Route: 048
  3. FRISIUM [Concomitant]
     Indication: EPILEPSY
     Dosage: 10 MG/DAY
     Route: 048

REACTIONS (4)
  - CAESAREAN SECTION [None]
  - CONVULSION [None]
  - DRUG EXPOSURE DURING PREGNANCY [None]
  - DRUG INEFFECTIVE [None]
